FAERS Safety Report 7449464-X (Version None)
Quarter: 2011Q2

REPORT INFORMATION
  Report Type: 
  Country: None (occurrence: None)
  Receive Date: 20110502
  Receipt Date: 20110330
  Transmission Date: 20111010
  Serious: No
  Sender: FDA-Public Use
  Company Number: US-BAYER-2011-029165

PATIENT
  Age: 81 Year
  Sex: Male
  Weight: 63 kg

DRUGS (1)
  1. ALEVE (CAPLET) [Suspect]
     Dosage: 1 DF, ONCE
     Route: 048

REACTIONS (1)
  - SENSATION OF FOREIGN BODY [None]
